FAERS Safety Report 10398727 (Version 1)
Quarter: 2014Q3

REPORT INFORMATION
  Report Type: Spontaneous
  Country: US (occurrence: None)
  Receive Date: 20140818
  Receipt Date: 20140818
  Transmission Date: 20150326
  Serious: Yes (Hospitalization)
  Sender: FDA-Public Use
  Company Number: None

PATIENT
  Age: 67 Year
  Sex: Male
  Weight: 86.18 kg

DRUGS (3)
  1. DALVANCE [Suspect]
     Active Substance: DALBAVANCIN
     Route: 042
     Dates: start: 20140813, end: 20140813
  2. DALVANCE [Suspect]
     Active Substance: DALBAVANCIN
     Indication: SUBCUTANEOUS ABSCESS
     Route: 042
     Dates: start: 20140813, end: 20140813
  3. DALVANCE [Suspect]
     Active Substance: DALBAVANCIN
     Indication: ABSCESS LIMB
     Route: 042
     Dates: start: 20140813, end: 20140813

REACTIONS (5)
  - Pyrexia [None]
  - Drug hypersensitivity [None]
  - Vision blurred [None]
  - Arthralgia [None]
  - Inflammation [None]

NARRATIVE: CASE EVENT DATE: 20140813
